FAERS Safety Report 8512175-3 (Version None)
Quarter: 2012Q2

REPORT INFORMATION
  Report Type: 
  Country: None (occurrence: None)
  Receive Date: 20120405
  Receipt Date: 20080924
  Transmission Date: 20120825
  Serious: Yes (Other)
  Sender: FDA-Public Use
  Company Number: PHEH2008US08558

PATIENT
  Age: 54 Year
  Sex: Female

DRUGS (1)
  1. RECLAST [Suspect]

REACTIONS (5)
  - PYREXIA [None]
  - GAIT DISTURBANCE [None]
  - ARTHRALGIA [None]
  - MOBILITY DECREASED [None]
  - FEELING COLD [None]
